FAERS Safety Report 10069606 (Version 1)
Quarter: 2014Q2

REPORT INFORMATION
  Report Type: Spontaneous
  Country: US (occurrence: US)
  Receive Date: 20140410
  Receipt Date: 20140410
  Transmission Date: 20141212
  Serious: No
  Sender: FDA-Public Use
  Company Number: US-BIOGENIDEC-2014BI031208

PATIENT
  Sex: Male

DRUGS (1)
  1. AVONEX [Suspect]
     Indication: MULTIPLE SCLEROSIS
     Route: 030
     Dates: end: 20081231

REACTIONS (4)
  - Mobility decreased [Recovered/Resolved]
  - Drug intolerance [Unknown]
  - Chills [Recovered/Resolved]
  - Pain [Recovered/Resolved]
